FAERS Safety Report 22921514 (Version 4)
Quarter: 2025Q2

REPORT INFORMATION
  Report Type: Spontaneous
  Country: JP (occurrence: JP)
  Receive Date: 20230908
  Receipt Date: 20250528
  Transmission Date: 20250717
  Serious: Yes (Death, Hospitalization, Other)
  Sender: ROCHE
  Company Number: JP-CHUGAI-2021019861

PATIENT
  Age: 75 Year
  Sex: Female
  Weight: 42.1 kg

DRUGS (17)
  1. ENSPRYNG [Suspect]
     Active Substance: SATRALIZUMAB-MWGE
     Indication: Neuromyelitis optica spectrum disorder
     Dosage: 120 MILLIGRAM, ONCE/4WEEKS
     Route: 058
     Dates: start: 20210915
  2. ENSPRYNG [Suspect]
     Active Substance: SATRALIZUMAB-MWGE
     Dosage: 120 MILLIGRAM, ONCE/4WEEKS
     Route: 058
     Dates: start: 20240828, end: 20241120
  3. VIBEGRON [Suspect]
     Active Substance: VIBEGRON
     Indication: Hypertonic bladder
     Dosage: 50 MILLIGRAM, QD
     Route: 065
     Dates: start: 20230517, end: 202306
  4. PREDNISOLONE [Suspect]
     Active Substance: PREDNISOLONE
     Indication: Neuromyelitis optica spectrum disorder
     Route: 048
  5. ELDECALCITOL [Concomitant]
     Active Substance: ELDECALCITOL
     Route: 065
  6. BISOPROLOL [Concomitant]
     Active Substance: BISOPROLOL
     Route: 065
  7. NICORANDIL [Concomitant]
     Active Substance: NICORANDIL
     Route: 065
  8. EZETIMIBE [Concomitant]
     Active Substance: EZETIMIBE
     Route: 065
  9. NEXIUM [Concomitant]
     Active Substance: ESOMEPRAZOLE MAGNESIUM
     Route: 065
  10. AMLODIPINE [Concomitant]
     Active Substance: AMLODIPINE BESYLATE
     Route: 065
  11. WARFARIN [Concomitant]
     Active Substance: WARFARIN
     Route: 065
  12. SULFAMETHOXAZOLE\TRIMETHOPRIM [Concomitant]
     Active Substance: SULFAMETHOXAZOLE\TRIMETHOPRIM
     Route: 065
  13. PRAVASTATIN SODIUM [Concomitant]
     Active Substance: PRAVASTATIN SODIUM
     Route: 065
  14. AMITIZA [Concomitant]
     Active Substance: LUBIPROSTONE
     Route: 048
  15. CP COMBINATION [Concomitant]
     Route: 048
  16. NEXIUM [Concomitant]
     Active Substance: ESOMEPRAZOLE MAGNESIUM
  17. SULPIRIDE [Concomitant]
     Active Substance: SULPIRIDE

REACTIONS (12)
  - Urinary tract infection [Recovered/Resolved]
  - Neutrophil count decreased [Unknown]
  - Infective spondylitis [Fatal]
  - Staphylococcal bacteraemia [Fatal]
  - Endocarditis [Fatal]
  - Loss of personal independence in daily activities [Unknown]
  - Thoracic vertebral fracture [Not Recovered/Not Resolved]
  - Cytopenia [Unknown]
  - Gait disturbance [Unknown]
  - COVID-19 [Unknown]
  - Neuromyelitis optica spectrum disorder [Fatal]
  - Staphylococcal infection [Not Recovered/Not Resolved]

NARRATIVE: CASE EVENT DATE: 20230530
